FAERS Safety Report 10382084 (Version 1)
Quarter: 2014Q3

REPORT INFORMATION
  Report Type: Spontaneous
  Country: IN (occurrence: IN)
  Receive Date: 20140813
  Receipt Date: 20140813
  Transmission Date: 20150326
  Serious: Yes (Life-Threatening, Hospitalization, Other)
  Sender: FDA-Public Use
  Company Number: IN-ACTAVIS-2014-17425

PATIENT
  Age: 23 Year
  Sex: Female

DRUGS (3)
  1. CLOZAPINE (UNKNOWN) [Suspect]
     Active Substance: CLOZAPINE
     Indication: PRODUCT USED FOR UNKNOWN INDICATION
     Dosage: 2000 MG, SINGLE (20 TABLETS OF 100 MG)
     Route: 065
  2. FOLIC ACID (UNKNOWN) [Suspect]
     Active Substance: FOLIC ACID
     Indication: PRODUCT USED FOR UNKNOWN INDICATION
     Dosage: 100 MG, SINGLE (20 TABLETS OF 5 MG)
     Route: 065
  3. CLONAZEPAM (UNKNOWN) [Suspect]
     Active Substance: CLONAZEPAM
     Indication: PRODUCT USED FOR UNKNOWN INDICATION
     Dosage: 5 MG, SINGLE (20 TABLETS OF 0.25 MG)
     Route: 065

REACTIONS (13)
  - Electrocardiogram ST segment depression [Unknown]
  - Affective disorder [None]
  - Eye movement disorder [None]
  - Electrocardiogram QT prolonged [Unknown]
  - Blood pressure systolic decreased [None]
  - Coma [Recovered/Resolved]
  - Pleural effusion [Unknown]
  - Tachycardia [Recovered/Resolved]
  - Overdose [Recovered/Resolved]
  - Miosis [None]
  - Disorientation [None]
  - Electrocardiogram T wave amplitude decreased [Unknown]
  - Toxicity to various agents [Recovered/Resolved]
